FAERS Safety Report 7381352-X (Version None)
Quarter: 2011Q1

REPORT INFORMATION
  Report Type: 
  Country: None (occurrence: None)
  Receive Date: 20110321
  Receipt Date: 20110311
  Transmission Date: 20110831
  Serious: Yes (Hospitalization, Other)
  Sender: FDA-Public Use
  Company Number: TAJPN-11-0017

PATIENT
  Age: 47 Year
  Sex: Female
  Weight: 52 kg

DRUGS (14)
  1. ABRAXANE [Suspect]
     Indication: BREAST CANCER METASTATIC
     Dosage: 382 MG
     Dates: start: 20101020, end: 20101020
  2. MUCOSTA (REBAMIPIDE) [Concomitant]
  3. LOXONIN (LOXOPROFEN SODIUM) [Concomitant]
  4. GOSHA-JINKI-GAN (HERBAL PREPARATION) [Concomitant]
  5. MECOBALAMIN [Concomitant]
  6. GASTER D (FAMOTIDINE) [Concomitant]
  7. ZOLADEX [Concomitant]
  8. NEOPHAGEN C (GLYCYRRHIZINATE POTASSIUM) [Concomitant]
  9. CONFATANIN (LOXOPROFEN) [Concomitant]
  10. HALCION [Concomitant]
  11. OXYCONTIN [Concomitant]
  12. MAGLAX (MAG-LAX) [Concomitant]
  13. NOVAMIN (PROCHLORPERAZINE) [Concomitant]
  14. NOLVADEX [Concomitant]

REACTIONS (10)
  - CONSTIPATION [None]
  - WHITE BLOOD CELL COUNT DECREASED [None]
  - BLOOD ALKALINE PHOSPHATASE INCREASED [None]
  - ALANINE AMINOTRANSFERASE INCREASED [None]
  - DEPRESSION [None]
  - ASPARTATE AMINOTRANSFERASE INCREASED [None]
  - NEUTROPHIL COUNT DECREASED [None]
  - NEUROPATHY PERIPHERAL [None]
  - GAMMA-GLUTAMYLTRANSFERASE INCREASED [None]
  - HAEMOGLOBIN DECREASED [None]
